FAERS Safety Report 4597208-1 (Version None)
Quarter: 2005Q1

REPORT INFORMATION
  Report Type: 
  Country: None (occurrence: None)
  Receive Date: 20050301
  Receipt Date: 20050221
  Transmission Date: 20050727
  Serious: No
  Sender: FDA-Public Use
  Company Number: 2005GB00362

PATIENT
  Sex: Male

DRUGS (1)
  1. ZOLADEX [Suspect]
     Dates: start: 19970101

REACTIONS (2)
  - CEREBELLAR ATAXIA [None]
  - DEMENTIA [None]
